FAERS Safety Report 25415020 (Version 1)
Quarter: 2025Q2

REPORT INFORMATION
  Report Type: Spontaneous
  Country: US (occurrence: US)
  Receive Date: 20250609
  Receipt Date: 20250609
  Transmission Date: 20250716
  Serious: Yes (Other)
  Sender: ELI LILLY AND COMPANY
  Company Number: US-ELI_LILLY_AND_COMPANY-US202506000511

PATIENT
  Age: 69 Year
  Sex: Female

DRUGS (8)
  1. MOUNJARO [Suspect]
     Active Substance: TIRZEPATIDE
     Indication: Supraventricular tachycardia
     Route: 058
     Dates: start: 20250517, end: 20250524
  2. MOUNJARO [Suspect]
     Active Substance: TIRZEPATIDE
     Indication: Supraventricular tachycardia
     Route: 058
     Dates: start: 20250517, end: 20250524
  3. MOUNJARO [Suspect]
     Active Substance: TIRZEPATIDE
     Indication: Supraventricular tachycardia
     Route: 058
     Dates: start: 20250517, end: 20250524
  4. MOUNJARO [Suspect]
     Active Substance: TIRZEPATIDE
     Indication: Supraventricular tachycardia
     Route: 058
     Dates: start: 20250517, end: 20250524
  5. MOUNJARO [Suspect]
     Active Substance: TIRZEPATIDE
     Indication: Atrial fibrillation
  6. MOUNJARO [Suspect]
     Active Substance: TIRZEPATIDE
     Indication: Atrial fibrillation
  7. MOUNJARO [Suspect]
     Active Substance: TIRZEPATIDE
     Indication: Atrial fibrillation
  8. MOUNJARO [Suspect]
     Active Substance: TIRZEPATIDE
     Indication: Atrial fibrillation

REACTIONS (4)
  - Supraventricular tachycardia [Unknown]
  - Atrial fibrillation [Unknown]
  - Insomnia [Recovering/Resolving]
  - Off label use [Unknown]

NARRATIVE: CASE EVENT DATE: 20250517
